FAERS Safety Report 23862765 (Version 2)
Quarter: 2024Q2

REPORT INFORMATION
  Report Type: Spontaneous
  Country: HU (occurrence: HU)
  Receive Date: 20240516
  Receipt Date: 20240529
  Transmission Date: 20240716
  Serious: Yes (Hospitalization, Other)
  Sender: FDA-Public Use
  Company Number: HU-002147023-NVSC2024HU102773

PATIENT
  Sex: Male

DRUGS (1)
  1. SECUKINUMAB [Suspect]
     Active Substance: SECUKINUMAB
     Indication: Ankylosing spondylitis
     Dosage: 300 MG, Q4W
     Route: 058

REACTIONS (9)
  - Chronic inflammatory demyelinating polyradiculoneuropathy [Recovering/Resolving]
  - Polyneuropathy [Recovering/Resolving]
  - Axonal and demyelinating polyneuropathy [Recovering/Resolving]
  - Burning sensation [Recovering/Resolving]
  - Headache [Recovering/Resolving]
  - Myelopathy [Unknown]
  - Lumbar spinal stenosis [Unknown]
  - Sciatica [Unknown]
  - Spinal deformity [Unknown]

NARRATIVE: CASE EVENT DATE: 20230501
